FAERS Safety Report 23646740 (Version 1)
Quarter: 2024Q1

REPORT INFORMATION
  Report Type: Spontaneous
  Country: US (occurrence: US)
  Receive Date: 20240319
  Receipt Date: 20240319
  Transmission Date: 20240409
  Serious: Yes (Other)
  Sender: FDA-Public Use
  Company Number: US-STRIDES ARCOLAB LIMITED-2024SP002532

PATIENT
  Age: 8 Decade
  Sex: Male

DRUGS (6)
  1. METHOTREXATE [Suspect]
     Active Substance: METHOTREXATE
     Indication: Conjunctival scar
     Dosage: UNK
     Route: 065
  2. METHOTREXATE [Suspect]
     Active Substance: METHOTREXATE
     Indication: Conjunctivitis
  3. MYCOPHENOLATE MOFETIL [Suspect]
     Active Substance: MYCOPHENOLATE MOFETIL
     Indication: Conjunctival scar
     Dosage: UNK
     Route: 065
  4. MYCOPHENOLATE MOFETIL [Suspect]
     Active Substance: MYCOPHENOLATE MOFETIL
     Indication: Conjunctivitis
  5. RITUXIMAB [Suspect]
     Active Substance: RITUXIMAB
     Indication: Conjunctival scar
     Dosage: 375 MG/M2, EVERY WEEK
     Route: 065
  6. RITUXIMAB [Suspect]
     Active Substance: RITUXIMAB
     Indication: Conjunctivitis
     Dosage: 375 MG/M2 MONTHLY
     Route: 065

REACTIONS (2)
  - Disease progression [Unknown]
  - Drug ineffective for unapproved indication [Unknown]
